FAERS Safety Report 17407404 (Version 1)
Quarter: 2020Q1

REPORT INFORMATION
  Report Type: Other
  Country: CA (occurrence: CA)
  Receive Date: 20200212
  Receipt Date: 20200212
  Transmission Date: 20200409
  Serious: Yes (Death, Hospitalization, Other)
  Sender: FDA-Public Use
  Company Number: CA-APOTEX-2020AP007338

PATIENT
  Age: 54 Year
  Sex: Female

DRUGS (2)
  1. PONATINIB [Suspect]
     Active Substance: PONATINIB
     Indication: ACUTE LYMPHOCYTIC LEUKAEMIA
     Dosage: 45 MG, UNKNOWN
     Route: 048
  2. ALENDRONATE [Suspect]
     Active Substance: ALENDRONATE SODIUM
     Indication: OSTEOPOROSIS PROPHYLAXIS
     Dosage: 70 MG, Q.WK.
     Route: 065

REACTIONS (11)
  - Nasopharyngitis [Fatal]
  - Bone density decreased [Fatal]
  - Cognitive disorder [Fatal]
  - Muscle spasms [Fatal]
  - Malaise [Fatal]
  - Arthralgia [Fatal]
  - Sleep disorder [Fatal]
  - Death [Fatal]
  - Fatigue [Fatal]
  - Pain [Fatal]
  - Weight decreased [Fatal]
